FAERS Safety Report 16864582 (Version 1)
Quarter: 2019Q3

REPORT INFORMATION
  Report Type: Spontaneous
  Country: IT (occurrence: IT)
  Receive Date: 20190928
  Receipt Date: 20190928
  Transmission Date: 20191005
  Serious: Yes (Life-Threatening, Other)
  Sender: FDA-Public Use
  Company Number: PHHY2019IT224402

PATIENT
  Sex: Female

DRUGS (1)
  1. KYMRIAH [Suspect]
     Active Substance: TISAGENLECLEUCEL
     Indication: ACUTE LYMPHOCYTIC LEUKAEMIA
     Dosage: UNK
     Route: 065

REACTIONS (7)
  - Bacterial infection [Recovering/Resolving]
  - Cytokine release syndrome [Recovered/Resolved]
  - Pharyngeal haemorrhage [Unknown]
  - Neurotoxicity [Recovered/Resolved]
  - Neutropenia [Unknown]
  - Cytokine release syndrome [Recovering/Resolving]
  - Neurotoxicity [Unknown]
